FAERS Safety Report 9523270 (Version 1)
Quarter: 2013Q3

REPORT INFORMATION
  Report Type: Spontaneous
  Country: FR (occurrence: FR)
  Receive Date: 20130913
  Receipt Date: 20130913
  Transmission Date: 20140515
  Serious: Yes (Hospitalization)
  Sender: FDA-Public Use
  Company Number: PHHY2013FR101151

PATIENT
  Age: 67 Year
  Sex: Female

DRUGS (7)
  1. ACLASTA [Suspect]
     Dosage: 5 MG
     Route: 042
     Dates: start: 20120616
  2. SIFROL [Suspect]
     Dosage: 0.26 MG, QD
     Route: 048
     Dates: start: 2010
  3. STALEVO [Concomitant]
     Dosage: 125/31.25 MG/200 MG (6 DAILY INTRODUCED IN 2010)
     Dates: start: 2010
  4. STALEVO [Concomitant]
  5. MANTADIX [Concomitant]
     Dosage: 100 MG, QD
     Dates: start: 2010
  6. MANTADIX [Concomitant]
  7. IDEOS [Concomitant]
     Dosage: UNK

REACTIONS (2)
  - Confusional state [Recovered/Resolved]
  - Hallucinations, mixed [Recovered/Resolved]
